FAERS Safety Report 9535346 (Version 2)
Quarter: 2013Q4

REPORT INFORMATION
  Report Type: Spontaneous
  Country: US (occurrence: US)
  Receive Date: 20130918
  Receipt Date: 20131014
  Transmission Date: 20140711
  Serious: No
  Sender: FDA-Public Use
  Company Number: US-TEVA-432752USA

PATIENT
  Sex: Female

DRUGS (2)
  1. COPAXONE [Suspect]
     Indication: MULTIPLE SCLEROSIS
     Dates: start: 201110, end: 20120831
  2. COPAXONE [Suspect]
     Dates: start: 20130520

REACTIONS (4)
  - Drug dispensing error [Unknown]
  - Expired drug administered [Unknown]
  - Urinary incontinence [Unknown]
  - Faecal incontinence [Unknown]
